FAERS Safety Report 9256923 (Version 9)
Quarter: 2014Q2

REPORT INFORMATION
  Report Type: Spontaneous
  Country: US (occurrence: US)
  Receive Date: 20130426
  Receipt Date: 20140425
  Transmission Date: 20141212
  Serious: Yes (Hospitalization, Disabling, Other)
  Sender: FDA-Public Use
  Company Number: US-ASTRAZENECA-2013SE27612

PATIENT
  Age: 51 Year
  Sex: Female
  Weight: 81.6 kg

DRUGS (60)
  1. NEXIUM [Suspect]
     Indication: GASTRIC DISORDER
     Dosage: DAILY
     Route: 048
     Dates: start: 1991, end: 2012
  2. NEXIUM [Suspect]
     Indication: DYSPEPSIA
     Dosage: DAILY
     Route: 048
     Dates: start: 1991, end: 2012
  3. NEXIUM [Suspect]
     Indication: GASTRIC DISORDER
     Route: 048
     Dates: start: 20030404
  4. NEXIUM [Suspect]
     Indication: DYSPEPSIA
     Route: 048
     Dates: start: 20030404
  5. NEXIUM [Suspect]
     Indication: GASTRIC DISORDER
     Route: 048
     Dates: start: 20031021
  6. NEXIUM [Suspect]
     Indication: DYSPEPSIA
     Route: 048
     Dates: start: 20031021
  7. NEXIUM [Suspect]
     Indication: GASTRIC DISORDER
     Route: 048
     Dates: start: 20080618
  8. NEXIUM [Suspect]
     Indication: DYSPEPSIA
     Route: 048
     Dates: start: 20080618
  9. NEXIUM [Suspect]
     Indication: GASTRIC DISORDER
     Dosage: DAILY
     Route: 048
     Dates: start: 2012
  10. NEXIUM [Suspect]
     Indication: DYSPEPSIA
     Dosage: DAILY
     Route: 048
     Dates: start: 2012
  11. NEXIUM [Suspect]
     Indication: GASTRIC DISORDER
     Route: 048
     Dates: start: 20060502
  12. NEXIUM [Suspect]
     Indication: DYSPEPSIA
     Route: 048
     Dates: start: 20060502
  13. PRILOSEC/ OMEPRAZOLE [Suspect]
     Indication: ULCER
     Route: 048
  14. PRILOSEC/ OMEPRAZOLE [Suspect]
     Indication: GASTROOESOPHAGEAL REFLUX DISEASE
     Route: 048
  15. PRILOSEC/ OMEPRAZOLE [Suspect]
     Indication: ULCER
     Route: 048
     Dates: start: 2010, end: 2012
  16. PRILOSEC/ OMEPRAZOLE [Suspect]
     Indication: GASTROOESOPHAGEAL REFLUX DISEASE
     Route: 048
     Dates: start: 2010, end: 2012
  17. PRILOSEC/ OMEPRAZOLE [Suspect]
     Indication: ULCER
     Route: 048
     Dates: start: 20100406
  18. PRILOSEC/ OMEPRAZOLE [Suspect]
     Indication: GASTROOESOPHAGEAL REFLUX DISEASE
     Route: 048
     Dates: start: 20100406
  19. PRILOSEC/ OMEPRAZOLE [Suspect]
     Indication: ULCER
     Route: 048
     Dates: start: 20110913
  20. PRILOSEC/ OMEPRAZOLE [Suspect]
     Indication: GASTROOESOPHAGEAL REFLUX DISEASE
     Route: 048
     Dates: start: 20110913
  21. MILK OF MAGNESIA [Concomitant]
     Dosage: AS NEEDED
     Dates: start: 1990, end: 2013
  22. ROLAIDS [Concomitant]
     Dosage: AS NEEDED
     Dates: start: 1990, end: 2013
  23. MYLANTA [Concomitant]
     Dosage: AS NEEDED
     Dates: start: 1990, end: 2013
  24. TUMS [Concomitant]
     Dosage: AS NEEDED
     Dates: start: 1991
  25. CARAFATE [Concomitant]
  26. CHANTIX [Concomitant]
  27. METOCLOPRAMIDE [Concomitant]
  28. GABAPENTIN [Concomitant]
  29. CLONAZEPAM [Concomitant]
  30. LEXAPRO [Concomitant]
  31. LEXAPRO [Concomitant]
     Dates: start: 20060813
  32. PROTONIX [Concomitant]
  33. PROTONIX [Concomitant]
     Dates: start: 20060813
  34. LOVENOX [Concomitant]
  35. MAGNESIUM OXIDE [Concomitant]
  36. MAGNESIUM OXIDE [Concomitant]
     Dates: start: 20060813
  37. SOMA [Concomitant]
  38. SOMA [Concomitant]
     Dates: start: 20060502
  39. LEVAQUIN [Concomitant]
  40. LEVAQUIN [Concomitant]
     Dates: start: 20060813
  41. COLACE [Concomitant]
  42. COLACE [Concomitant]
     Dates: start: 20060813
  43. NAPROXEN [Concomitant]
     Route: 048
     Dates: start: 20110123
  44. SINGULAIR [Concomitant]
     Route: 048
     Dates: start: 20110123
  45. AMBIEN [Concomitant]
     Route: 048
     Dates: start: 20110111
  46. AMBIEN [Concomitant]
     Route: 048
     Dates: start: 20060706
  47. POTASSIUM CHLORIDE [Concomitant]
     Route: 048
  48. CALCIUM [Concomitant]
  49. CYMBALTA [Concomitant]
     Dates: start: 20050912
  50. CYMBALTA [Concomitant]
     Dates: start: 20060502
  51. ZINC [Concomitant]
     Route: 048
     Dates: start: 20090316
  52. BENZONATATE [Concomitant]
     Dates: start: 20120325
  53. METHADONE [Concomitant]
     Route: 048
  54. FERROUS SULFATE [Concomitant]
     Dosage: TWO TIMES A DAY
     Route: 048
     Dates: start: 20090719
  55. MULTIVITAMIN WITH IRON [Concomitant]
     Route: 048
  56. VITAMIN  B12 [Concomitant]
  57. CYCLOBENZAPRINE [Concomitant]
     Dates: start: 20030116
  58. SULFAMETHOXAZOLE [Concomitant]
     Dosage: 800-160 MG
     Route: 048
     Dates: start: 20110817
  59. CARISOPRODOL [Concomitant]
     Route: 048
     Dates: start: 20110817
  60. PROMETHAZINE HCL [Concomitant]
     Route: 048
     Dates: start: 20110817

REACTIONS (38)
  - Hip fracture [Unknown]
  - Breast cancer [Unknown]
  - Cervix carcinoma [Unknown]
  - Pelvic fracture [Unknown]
  - Back injury [Unknown]
  - Back pain [Unknown]
  - Back disorder [Unknown]
  - Femur fracture [Unknown]
  - Chronic hepatitis C [Unknown]
  - Activities of daily living impaired [Unknown]
  - Limb crushing injury [Unknown]
  - Osteoporosis [Unknown]
  - Radius fracture [Unknown]
  - Spinal compression fracture [Unknown]
  - Patella fracture [Unknown]
  - Bone disorder [Unknown]
  - Lower limb fracture [Unknown]
  - Arthritis [Unknown]
  - Calcium deficiency [Unknown]
  - Spinal osteoarthritis [Unknown]
  - Osteopenia [Unknown]
  - Body tinea [Unknown]
  - Osteoarthritis [Unknown]
  - Intervertebral disc degeneration [Unknown]
  - Limb injury [Unknown]
  - Skeletal injury [Unknown]
  - Foot fracture [Unknown]
  - Fall [Unknown]
  - Wrist deformity [Unknown]
  - Ulna fracture [Unknown]
  - Vertebral wedging [Unknown]
  - Joint ankylosis [Unknown]
  - Insomnia [Unknown]
  - Liver disorder [Unknown]
  - Tibia fracture [Unknown]
  - Fibula fracture [Unknown]
  - Chondromalacia [Unknown]
  - Depression [Unknown]
